FAERS Safety Report 10853046 (Version 1)
Quarter: 2015Q1

REPORT INFORMATION
  Report Type: Spontaneous
  Country: US (occurrence: None)
  Receive Date: 20150218
  Receipt Date: 20150218
  Transmission Date: 20150721
  Serious: Yes (Hospitalization)
  Sender: FDA-Public Use
  Company Number: None

PATIENT
  Age: 28 Year
  Sex: Female
  Weight: 81 kg

DRUGS (3)
  1. HERCEPTIN [Suspect]
     Active Substance: TRASTUZUMAB
     Indication: BREAST CANCER
     Dosage: 450 MG IV Q12D
     Route: 042
     Dates: start: 201403, end: 20150129
  2. HERCEPTIN [Suspect]
     Active Substance: TRASTUZUMAB
     Indication: ADJUVANT THERAPY
     Dosage: 450 MG IV Q12D
     Route: 042
     Dates: start: 201403, end: 20150129
  3. CARVEDILOL. [Suspect]
     Active Substance: CARVEDILOL
     Indication: EJECTION FRACTION DECREASED
     Dates: start: 20140312

REACTIONS (2)
  - Lung consolidation [None]
  - Dyspnoea [None]

NARRATIVE: CASE EVENT DATE: 20150211
